FAERS Safety Report 8239593-5 (Version None)
Quarter: 2012Q1

REPORT INFORMATION
  Report Type: 
  Country: None (occurrence: None)
  Receive Date: 20120328
  Receipt Date: 20120320
  Transmission Date: 20120608
  Serious: Yes (Other)
  Sender: FDA-Public Use
  Company Number: US-JNJFOC-20120103191

PATIENT
  Sex: Male
  Weight: 95.26 kg

DRUGS (13)
  1. SULINDAC [Concomitant]
  2. CRESTOR [Concomitant]
  3. TRAMADOL HCL [Concomitant]
  4. HUMALOG [Concomitant]
  5. CALCIUM CARBONATE [Concomitant]
  6. OSTEO BI-FLEX [Concomitant]
  7. METFORMIN HCL [Concomitant]
  8. DIGOXIN [Concomitant]
  9. TAMSULOSIN HCL [Concomitant]
  10. XARELTO [Suspect]
     Route: 048
     Dates: start: 20111103, end: 20111111
  11. XARELTO [Suspect]
     Indication: ANTICOAGULANT THERAPY
     Route: 048
     Dates: start: 20111103, end: 20111111
  12. XARELTO [Suspect]
     Indication: THROMBOSIS PROPHYLAXIS
     Route: 048
     Dates: start: 20111103, end: 20111111
  13. BYSTOLIC [Concomitant]

REACTIONS (2)
  - PULMONARY EMBOLISM [None]
  - DEEP VEIN THROMBOSIS [None]
